FAERS Safety Report 11012361 (Version 1)
Quarter: 2015Q2

REPORT INFORMATION
  Report Type: Spontaneous
  Country: US (occurrence: None)
  Receive Date: 20150407
  Receipt Date: 20150407
  Transmission Date: 20150821
  Serious: Yes (Hospitalization, Other)
  Sender: FDA-Public Use
  Company Number: LH201400233

PATIENT
  Age: 37 Year
  Sex: Female

DRUGS (7)
  1. PRENATAL  VITAMINS /01549301/ (ASCORBIC ACID, BIOTIN, MINERALS NOS, NICOTINIC ACID, RETINOL, TOCOPHEROL, VITAMIN B NOS, VITAMI D NOS) [Concomitant]
  2. NICOTINIC ACID [Concomitant]
     Active Substance: NIACIN
  3. RETINOL [Concomitant]
     Active Substance: RETINOL
  4. TOCOPHEROL [Concomitant]
     Active Substance: TOCOPHEROL
  5. MAKENA [Suspect]
     Active Substance: HYDROXYPROGESTERONE CAPROATE
     Indication: PREMATURE DELIVERY
     Dosage: 250 MG, ONCE WEEKLY, INTRAMUSCULAR
     Route: 030
     Dates: start: 20140704
  6. VITAMIN B NOS [Concomitant]
     Active Substance: VITAMIN B
  7. VITMIN D NOS [Concomitant]

REACTIONS (6)
  - Cervix disorder [None]
  - Cervical incompetence [None]
  - Premature rupture of membranes [None]
  - Secretion discharge [None]
  - Premature labour [None]
  - Premature delivery [None]

NARRATIVE: CASE EVENT DATE: 20140812
